FAERS Safety Report 5823950-8 (Version None)
Quarter: 2008Q3

REPORT INFORMATION
  Report Type: 
  Country: None (occurrence: None)
  Receive Date: 20080724
  Receipt Date: 20080708
  Transmission Date: 20090109
  Serious: Yes (Hospitalization)
  Sender: FDA-Public Use
  Company Number: 230920J08USA

PATIENT
  Age: 40 Year
  Sex: Female

DRUGS (4)
  1. REBIF [Suspect]
     Indication: MULTIPLE SCLEROSIS
     Dosage: 44 MCG, 3 IN 1 WEEKS, SUBCUTANEOUS
     Route: 058
     Dates: start: 20061001, end: 20071020
  2. BLOOD PRESSURE MEDICATION [Concomitant]
  3. NEURONTIN [Concomitant]
  4. UNSPECIFIED MEDICATIONS [Concomitant]

REACTIONS (4)
  - CHEST X-RAY ABNORMAL [None]
  - PNEUMOCYSTIS JIROVECI PNEUMONIA [None]
  - PNEUMONIA STAPHYLOCOCCAL [None]
  - SCAR [None]
